FAERS Safety Report 11278946 (Version 1)
Quarter: 2015Q3

REPORT INFORMATION
  Report Type: Spontaneous
  Country: US (occurrence: US)
  Receive Date: 20150717
  Receipt Date: 20150717
  Transmission Date: 20151125
  Serious: No
  Sender: FDA-Public Use
  Company Number: US-ENDO PHARMACEUTICALS INC.-LISI20140039

PATIENT
  Sex: Male

DRUGS (1)
  1. LISINOPRIL TABLETS 10MG [Suspect]
     Active Substance: LISINOPRIL
     Indication: PRODUCT USED FOR UNKNOWN INDICATION
     Route: 048
     Dates: start: 2013

REACTIONS (1)
  - Retching [Not Recovered/Not Resolved]

NARRATIVE: CASE EVENT DATE: 201401
